FAERS Safety Report 15850331 (Version 2)
Quarter: 2019Q1

REPORT INFORMATION
  Report Type: Spontaneous
  Country: US (occurrence: US)
  Receive Date: 20190121
  Receipt Date: 20190325
  Transmission Date: 20190417
  Serious: Yes (Other)
  Sender: FDA-Public Use
  Company Number: US-PFIZER INC-2019021411

PATIENT
  Sex: Male

DRUGS (1)
  1. VIAGRA [Suspect]
     Active Substance: SILDENAFIL CITRATE
     Dosage: UNK

REACTIONS (6)
  - Depressed mood [Unknown]
  - Libido increased [Unknown]
  - Erection increased [Unknown]
  - Drug ineffective [Unknown]
  - Penile burning sensation [Unknown]
  - Penis disorder [Unknown]
